FAERS Safety Report 10483020 (Version 2)
Quarter: 2014Q4

REPORT INFORMATION
  Report Type: Spontaneous
  Country: DE (occurrence: DE)
  Receive Date: 20140930
  Receipt Date: 20141212
  Transmission Date: 20150528
  Serious: Yes (Other)
  Sender: FDA-Public Use
  Company Number: DE-ROCHE-1467703

PATIENT
  Sex: Male

DRUGS (1)
  1. ERIVEDGE [Suspect]
     Active Substance: VISMODEGIB
     Indication: BASAL CELL CARCINOMA
     Route: 065
     Dates: start: 20140702

REACTIONS (2)
  - Malignant neoplasm progression [Unknown]
  - Gamma-glutamyltransferase increased [Unknown]
